FAERS Safety Report 7116910-0 (Version None)
Quarter: 2010Q4

REPORT INFORMATION
  Report Type: 
  Country: None (occurrence: None)
  Receive Date: 20101122
  Receipt Date: 20101112
  Transmission Date: 20110411
  Serious: Yes (Death, Other)
  Sender: FDA-Public Use
  Company Number: CN-MILLENNIUM PHARMACEUTICALS, INC.-2010-05651

PATIENT

DRUGS (1)
  1. VELCADE [Suspect]
     Indication: MANTLE CELL LYMPHOMA

REACTIONS (3)
  - BONE MARROW FAILURE [None]
  - DISEASE PROGRESSION [None]
  - LUNG INFECTION [None]
